FAERS Safety Report 21082186 (Version 3)
Quarter: 2022Q3

REPORT INFORMATION
  Report Type: Report from Study
  Country: AU (occurrence: None)
  Receive Date: 20220714
  Receipt Date: 20220722
  Transmission Date: 20221027
  Serious: Yes (Hospitalization)
  Sender: FDA-Public Use
  Company Number: AU-Eisai Medical Research-EC-2022-119079

PATIENT
  Age: 65 Year
  Sex: Male
  Weight: 50.8 kg

DRUGS (17)
  1. LENVATINIB [Suspect]
     Active Substance: LENVATINIB
     Indication: Squamous cell carcinoma of head and neck
     Route: 048
     Dates: start: 20210304, end: 20220705
  2. LENVATINIB [Suspect]
     Active Substance: LENVATINIB
     Route: 048
     Dates: start: 20220711
  3. PEMBROLIZUMAB [Suspect]
     Active Substance: PEMBROLIZUMAB
     Indication: Squamous cell carcinoma of head and neck
     Route: 042
     Dates: start: 20210304, end: 20220616
  4. PEMBROLIZUMAB [Suspect]
     Active Substance: PEMBROLIZUMAB
     Route: 042
     Dates: start: 20220715
  5. ACETAMINOPHEN [Concomitant]
     Active Substance: ACETAMINOPHEN
     Dates: start: 20210315
  6. NILSTAT [NYSTATIN] [Concomitant]
     Dates: start: 20210315
  7. MS CONTIN [Concomitant]
     Active Substance: MORPHINE SULFATE
     Dates: start: 20210318
  8. DOCUSATE SODIUM\SENNOSIDES A AND B [Concomitant]
     Active Substance: DOCUSATE SODIUM\SENNOSIDES A AND B
     Dates: start: 20210315
  9. NITROGLYCERIN [Concomitant]
     Active Substance: NITROGLYCERIN
     Dates: start: 20210319
  10. MORPHINE HYDROCHLORIDE [Concomitant]
     Active Substance: MORPHINE HYDROCHLORIDE
     Dates: start: 20210319
  11. LEVOTHYROXINE SODIUM [Concomitant]
     Active Substance: LEVOTHYROXINE SODIUM
     Dates: start: 20210706
  12. PERINDOPRIL [Concomitant]
     Active Substance: PERINDOPRIL
     Dates: start: 20210813
  13. THIAMINE [Concomitant]
     Active Substance: THIAMINE
     Dates: start: 20210812
  14. RISPERIDONE [Concomitant]
     Active Substance: RISPERIDONE
     Dates: start: 20211112
  15. PREGABALIN [Concomitant]
     Active Substance: PREGABALIN
     Dates: start: 20210318
  16. MELATONIN [Concomitant]
     Active Substance: MELATONIN
     Dates: start: 20210811
  17. CANDESARTAN [Concomitant]
     Active Substance: CANDESARTAN
     Dates: start: 201808, end: 20220706

REACTIONS (1)
  - Hypotension [Recovered/Resolved]

NARRATIVE: CASE EVENT DATE: 20220705
